FAERS Safety Report 18479950 (Version 1)
Quarter: 2020Q4

REPORT INFORMATION
  Report Type: Spontaneous
  Country: HR (occurrence: HR)
  Receive Date: 20201109
  Receipt Date: 20201109
  Transmission Date: 20210114
  Serious: Yes (Hospitalization)
  Sender: FDA-Public Use
  Company Number: HR-TEVA-2020-HR-1845429

PATIENT
  Age: 50 Year
  Sex: Female
  Weight: 63 kg

DRUGS (1)
  1. DOKSICIKLIN [Suspect]
     Active Substance: DOXYCYCLINE
     Indication: VULVOVAGINAL INFLAMMATION
     Dosage: 100 MG
     Route: 048
     Dates: start: 2020

REACTIONS (10)
  - Pallor [Recovering/Resolving]
  - Malaise [Recovering/Resolving]
  - Abdominal pain upper [Recovering/Resolving]
  - Dyspepsia [Recovering/Resolving]
  - Oesophageal pain [Recovering/Resolving]
  - Retching [Recovering/Resolving]
  - Eructation [Recovering/Resolving]
  - Decreased appetite [Recovering/Resolving]
  - Nausea [Recovering/Resolving]
  - Abdominal discomfort [Recovering/Resolving]

NARRATIVE: CASE EVENT DATE: 20201010
